FAERS Safety Report 16532823 (Version 1)
Quarter: 2019Q3

REPORT INFORMATION
  Report Type: Spontaneous
  Country: US (occurrence: US)
  Receive Date: 20190703
  Receipt Date: 20190703
  Transmission Date: 20191004
  Serious: No
  Sender: FDA-Public Use
  Company Number: None

PATIENT
  Age: 65 Year
  Sex: Female

DRUGS (2)
  1. MEKTOVI [Concomitant]
     Active Substance: BINIMETINIB
     Dates: start: 20190603
  2. BRAFTOVI [Suspect]
     Active Substance: ENCORAFENIB
     Dates: start: 20190603

REACTIONS (1)
  - Fatigue [None]

NARRATIVE: CASE EVENT DATE: 20190702
